FAERS Safety Report 23150324 (Version 1)
Quarter: 2023Q4

REPORT INFORMATION
  Report Type: Spontaneous
  Country: NL (occurrence: NL)
  Receive Date: 20231106
  Receipt Date: 20231106
  Transmission Date: 20240110
  Serious: Yes (Hospitalization)
  Sender: FDA-Public Use
  Company Number: None

PATIENT
  Age: 80 Year
  Sex: Male
  Weight: 98 kg

DRUGS (2)
  1. OXYCODONE HYDROCHLORIDE [Suspect]
     Active Substance: OXYCODONE HYDROCHLORIDE
     Indication: Pain
     Dosage: 2X PD 10 MG LONG-ACTING, 4X PD AS NEEDED 5 MG
     Route: 065
     Dates: start: 20231001
  2. NAPROXEN [Suspect]
     Active Substance: NAPROXEN
     Indication: Pain
     Dosage: 3X A DAY 1 PIECE
     Route: 065
     Dates: start: 20231001, end: 20231008

REACTIONS (1)
  - Diverticulitis [Recovering/Resolving]
